FAERS Safety Report 14967314 (Version 1)
Quarter: 2018Q2

REPORT INFORMATION
  Report Type: Spontaneous
  Country: CZ (occurrence: CZ)
  Receive Date: 20180604
  Receipt Date: 20180604
  Transmission Date: 20180711
  Serious: Yes (Death, Other)
  Sender: FDA-Public Use
  Company Number: CZ-CHEPLA-C20170696_E

PATIENT
  Age: 74 Year
  Sex: Female

DRUGS (2)
  1. IDARUBICIN [Suspect]
     Active Substance: IDARUBICIN
     Indication: ACUTE PROMYELOCYTIC LEUKAEMIA
     Dosage: REDUCED DOSE OF IDARUBICIN (25% IDA; COMPARED TO AIDA PROTOCOL) COMBINED WITH ATRA
  2. ATRA [Suspect]
     Active Substance: TRETINOIN
     Indication: ACUTE PROMYELOCYTIC LEUKAEMIA

REACTIONS (2)
  - Central nervous system haemorrhage [Fatal]
  - Leukocytosis [Unknown]
